FAERS Safety Report 9843453 (Version 1)
Quarter: 2013Q4

REPORT INFORMATION
  Report Type: Spontaneous
  Country: US (occurrence: None)
  Receive Date: 20131219
  Receipt Date: 20131219
  Transmission Date: 20140711
  Serious: Yes (Other)
  Sender: FDA-Public Use
  Company Number: 163-20785-13081778

PATIENT
  Age: 66 Year
  Sex: Male
  Weight: 127 kg

DRUGS (10)
  1. THALOMID (THALIDOMIDE) (CAPSULES) [Suspect]
     Indication: PLASMA CELL MYELOMA
     Route: 048
     Dates: end: 2004
  2. DEXAMETHASONE [Concomitant]
  3. VIAGRA [Concomitant]
  4. NOVOLG [Concomitant]
  5. STOOL SOFTENER [Concomitant]
  6. ASPIRIN [Concomitant]
  7. MULTIVITAMINS [Concomitant]
  8. PAXIL [Concomitant]
  9. HYDROCHLOROTHIAZIDE [Concomitant]
  10. LIPITOR [Concomitant]

REACTIONS (1)
  - Thrombosis [None]
